FAERS Safety Report 4990792-5 (Version None)
Quarter: 2006Q2

REPORT INFORMATION
  Report Type: 
  Country: None (occurrence: None)
  Receive Date: 20060428
  Receipt Date: 20060419
  Transmission Date: 20061013
  Serious: Yes (Life-Threatening, Disabling)
  Sender: FDA-Public Use
  Company Number: OSCN-NO-0604S-0097

PATIENT
  Age: 50 Year
  Sex: Female

DRUGS (1)
  1. OMNISCAN [Suspect]
     Indication: DRUG USE FOR UNKNOWN INDICATION
     Dosage: 50 ML, SINGLE DOSE, I.V.
     Route: 042
     Dates: start: 20060124, end: 20060124

REACTIONS (7)
  - DEPRESSION [None]
  - FIBROSIS [None]
  - INSOMNIA [None]
  - MUSCLE CONTRACTURE [None]
  - MYALGIA [None]
  - NEPHROGENIC FIBROSING DERMOPATHY [None]
  - WEIGHT DECREASED [None]
